FAERS Safety Report 8445524-5 (Version None)
Quarter: 2012Q2

REPORT INFORMATION
  Report Type: 
  Country: None (occurrence: None)
  Receive Date: 20120618
  Receipt Date: 20120608
  Transmission Date: 20120825
  Serious: Yes (Hospitalization)
  Sender: FDA-Public Use
  Company Number: JP-MERCK-1205USA04841

PATIENT
  Age: 70 Year
  Sex: Male
  Weight: 62 kg

DRUGS (2)
  1. VITAMIN B12 [Suspect]
     Route: 048
     Dates: start: 20120511, end: 20120520
  2. COZAAR [Suspect]
     Indication: HYPERTENSION
     Route: 048
     Dates: start: 20120511, end: 20120520

REACTIONS (3)
  - PALPITATIONS [None]
  - STEVENS-JOHNSON SYNDROME [None]
  - HEPATIC FUNCTION ABNORMAL [None]
